FAERS Safety Report 8169114-7 (Version None)
Quarter: 2012Q1

REPORT INFORMATION
  Report Type: 
  Country: None (occurrence: None)
  Receive Date: 20120227
  Receipt Date: 20120224
  Transmission Date: 20120608
  Serious: Yes (Death, Life-Threatening, Other)
  Sender: FDA-Public Use
  Company Number: CN-ASTRAZENECA-2012SE12228

PATIENT
  Age: 27 Year
  Sex: Male

DRUGS (19)
  1. BUPIVACAINE HCL [Suspect]
     Route: 008
     Dates: start: 19991021
  2. BUPIVACAINE HCL [Suspect]
     Route: 008
     Dates: start: 19991020
  3. BUPIVACAINE HCL [Suspect]
     Route: 008
     Dates: start: 19991020
  4. BUPIVACAINE HCL [Suspect]
     Route: 008
     Dates: start: 19991021
  5. BUPIVACAINE HCL [Suspect]
     Route: 008
     Dates: start: 19991021
  6. BUPIVACAINE HCL [Suspect]
     Route: 008
     Dates: start: 19991021
  7. BUPIVACAINE HCL [Suspect]
     Route: 008
     Dates: start: 19991012
  8. BUPIVACAINE HCL [Suspect]
     Route: 008
     Dates: start: 19991020
  9. BUPIVACAINE HCL [Suspect]
     Route: 008
     Dates: start: 19991021
  10. VITAMIN B-12 [Suspect]
     Dates: start: 19991021
  11. BUPIVACAINE HCL [Suspect]
     Route: 008
     Dates: start: 19991021
  12. BUPIVACAINE HCL [Suspect]
     Indication: ANALGESIC THERAPY
     Route: 008
     Dates: start: 19991012
  13. BUPIVACAINE HCL [Suspect]
     Route: 008
     Dates: start: 19991020
  14. VITAMIN B-12 [Suspect]
     Dates: start: 19991020
  15. VITAMIN B-12 [Suspect]
     Dates: start: 19991021
  16. BUPIVACAINE HCL [Suspect]
     Route: 008
     Dates: start: 19991021
  17. VITAMIN B-12 [Suspect]
     Dates: start: 19991021
  18. VITAMIN B-12 [Suspect]
     Dates: start: 19991021
  19. BUPIVACAINE HCL [Suspect]
     Route: 008
     Dates: start: 19991021

REACTIONS (6)
  - PURPURA [None]
  - PULMONARY OEDEMA [None]
  - COMA [None]
  - PULSE ABSENT [None]
  - CARDIO-RESPIRATORY ARREST [None]
  - PAIN [None]
